FAERS Safety Report 7759276-5 (Version None)
Quarter: 2011Q3

REPORT INFORMATION
  Report Type: 
  Country: None (occurrence: None)
  Receive Date: 20110919
  Receipt Date: 20110908
  Transmission Date: 20111222
  Serious: Yes (Hospitalization)
  Sender: FDA-Public Use
  Company Number: FR-BAXTER-2011BH028830

PATIENT
  Age: 35 Year
  Sex: Female

DRUGS (2)
  1. CYCLOPHOSPHAMIDE [Suspect]
     Indication: BREAST CANCER
     Route: 042
     Dates: start: 20110711, end: 20110711
  2. DOCETAXEL [Suspect]
     Indication: BREAST CANCER
     Route: 042
     Dates: start: 20110711, end: 20110711

REACTIONS (6)
  - STOMATITIS [None]
  - ASTHENIA [None]
  - VERTIGO [None]
  - PYREXIA [None]
  - AGRANULOCYTOSIS [None]
  - BONE PAIN [None]
